FAERS Safety Report 9382731 (Version 1)
Quarter: 2013Q3

REPORT INFORMATION
  Report Type: Report from Study
  Country: FR (occurrence: FR)
  Receive Date: 20130703
  Receipt Date: 20130703
  Transmission Date: 20140515
  Serious: Yes (Hospitalization)
  Sender: FDA-Public Use
  Company Number: FR-009507513-1306FRA014097

PATIENT
  Age: 53 Year
  Sex: Male
  Weight: 83.5 kg

DRUGS (6)
  1. BOCEPREVIR [Suspect]
     Indication: HEPATITIS C
     Dosage: 2400 MG, QD
     Dates: start: 20121113, end: 20121127
  2. PEGASYS [Suspect]
     Indication: HEPATITIS C
     Dosage: 180 MICROGRAM, QW
     Dates: start: 20121016, end: 20121127
  3. RIBAVIRIN [Suspect]
     Indication: HEPATITIS C
     Dosage: 1200 MG, QD
     Dates: start: 20121016, end: 20121127
  4. DUPHALAC [Concomitant]
     Indication: HEPATIC ENCEPHALOPATHY PROPHYLAXIS
     Dosage: 1 UNK, UNK
     Dates: start: 2010
  5. AVLOCARDYL [Concomitant]
     Indication: HEPATITIS C
     Dosage: 40 MG, QD
     Dates: start: 20120627
  6. INSPRA [Suspect]
     Dosage: UNK
     Dates: start: 2010

REACTIONS (2)
  - Hyperglycaemia [Unknown]
  - Polydipsia [Unknown]
